FAERS Safety Report 24755361 (Version 1)
Quarter: 2024Q4

REPORT INFORMATION
  Report Type: Spontaneous
  Country: CN (occurrence: CN)
  Receive Date: 20241219
  Receipt Date: 20241219
  Transmission Date: 20250115
  Serious: Yes (Other)
  Sender: PURDUE
  Company Number: CN-NAPPMUNDI-GBR-2024-0122155

PATIENT
  Age: 56 Year
  Sex: Female
  Weight: 60 kg

DRUGS (2)
  1. MS CONTIN [Suspect]
     Active Substance: MORPHINE SULFATE
     Indication: Chest pain
     Dosage: 60 MILLIGRAM, Q12H
     Route: 048
     Dates: start: 20241128, end: 20241202
  2. MS CONTIN [Suspect]
     Active Substance: MORPHINE SULFATE
     Indication: Back pain

REACTIONS (2)
  - Somnolence [Recovering/Resolving]
  - Unresponsive to stimuli [Recovering/Resolving]

NARRATIVE: CASE EVENT DATE: 20241202
